FAERS Safety Report 8443282-1 (Version None)
Quarter: 2012Q2

REPORT INFORMATION
  Report Type: 
  Country: None (occurrence: None)
  Receive Date: 20120618
  Receipt Date: 20120605
  Transmission Date: 20120825
  Serious: Yes (Hospitalization, Other)
  Sender: FDA-Public Use
  Company Number: FR-BRISTOL-MYERS SQUIBB COMPANY-16670762

PATIENT
  Age: 77 Year
  Sex: Female

DRUGS (16)
  1. COLCHICINE [Concomitant]
  2. CELEBREX [Suspect]
     Route: 048
     Dates: start: 20111001, end: 20111017
  3. SPASFON [Concomitant]
  4. METEOSPASMYL [Concomitant]
  5. IRBESARTAN AND HYDROCHLOROTHIAZIDE [Suspect]
     Route: 048
     Dates: start: 20111001, end: 20111017
  6. TRAMADOL HCL [Concomitant]
  7. MOVIPREP [Concomitant]
  8. PRAXILENE [Concomitant]
  9. CLONAZEPAM [Concomitant]
  10. VITAMIN D [Concomitant]
  11. ALLOPURINOL [Concomitant]
  12. LYRICA [Concomitant]
  13. ACETAMINOPHEN [Concomitant]
  14. PLAVIX [Concomitant]
  15. OMEPRAZOLE [Concomitant]
  16. CRESTOR [Concomitant]

REACTIONS (8)
  - FAECALOMA [None]
  - RENAL FAILURE [None]
  - CHOLESTASIS [None]
  - OSTEOARTHRITIS [None]
  - CONFUSIONAL STATE [None]
  - CYTOLYTIC HEPATITIS [None]
  - DEHYDRATION [None]
  - ESCHERICHIA URINARY TRACT INFECTION [None]
